FAERS Safety Report 9514750 (Version 1)
Quarter: 2013Q3

REPORT INFORMATION
  Report Type: Spontaneous
  Country: FR (occurrence: FR)
  Receive Date: 20130911
  Receipt Date: 20130911
  Transmission Date: 20140515
  Serious: Yes (Other)
  Sender: FDA-Public Use
  Company Number: FR-BAYER-2013-105596

PATIENT
  Age: 20 Year
  Sex: Male

DRUGS (1)
  1. PRAZIQUANTEL [Suspect]
     Indication: SCHISTOSOMIASIS
     Dosage: 40 MG/KG, ONCE

REACTIONS (2)
  - Urinary tract infection bacterial [Recovered/Resolved]
  - Salmonella test positive [Recovered/Resolved]
